FAERS Safety Report 24056876 (Version 2)
Quarter: 2024Q4

REPORT INFORMATION
  Report Type: Report from Study
  Country: US (occurrence: US)
  Receive Date: 20240706
  Receipt Date: 20241026
  Transmission Date: 20250115
  Serious: Yes (Other)
  Sender: ABBVIE
  Company Number: US-ABBVIE-5826448

PATIENT
  Age: 62 Year
  Sex: Male

DRUGS (1)
  1. HUMIRA [Suspect]
     Active Substance: ADALIMUMAB
     Indication: Colitis ulcerative
     Route: 058
     Dates: start: 20230707

REACTIONS (2)
  - Colon neoplasm [Not Recovered/Not Resolved]
  - Intestinal cyst [Not Recovered/Not Resolved]

NARRATIVE: CASE EVENT DATE: 20240501
